FAERS Safety Report 10472385 (Version 3)
Quarter: 2014Q4

REPORT INFORMATION
  Report Type: Spontaneous
  Country: US (occurrence: None)
  Receive Date: 20140922
  Receipt Date: 20141010
  Transmission Date: 20150528
  Serious: Yes (Other)
  Sender: FDA-Public Use
  Company Number: VAL_03406_2014

PATIENT
  Sex: Female

DRUGS (17)
  1. DIOVAN [Suspect]
     Active Substance: VALSARTAN
     Indication: PRODUCT USED FOR UNKNOWN INDICATION
     Dosage: (40 MG PER DAY),?
     Dates: start: 2012
  2. LUTEIN [Concomitant]
     Active Substance: LUTEIN
  3. DIOVAN HCT [Suspect]
     Active Substance: HYDROCHLOROTHIAZIDE\VALSARTAN
     Indication: PRODUCT USED FOR UNKNOWN INDICATION
     Dosage: (DF)
  4. ACE INHIBITORS [Suspect]
     Active Substance: UNSPECIFIED INGREDIENT
     Indication: HYPERTENSION
     Dosage: (DF)
     Dates: end: 2012
  5. AVAPRO [Concomitant]
     Active Substance: IRBESARTAN
  6. NORVASC [Suspect]
     Active Substance: AMLODIPINE BESYLATE
     Indication: PRODUCT USED FOR UNKNOWN INDICATION
     Dosage: (5 MG, FREQUENCY UNSPECIFIED)
  7. LEVOTHYROXINE [Concomitant]
     Active Substance: LEVOTHYROXINE
  8. CALCIUM [Concomitant]
     Active Substance: CALCIUM
  9. ACETAMINOPHEN. [Concomitant]
     Active Substance: ACETAMINOPHEN
  10. METOPROLOL [Suspect]
     Active Substance: METOPROLOL
     Indication: PRODUCT USED FOR UNKNOWN INDICATION
     Dosage: (DF)
  11. FUROSEMIDE. [Suspect]
     Active Substance: FUROSEMIDE
     Indication: PRODUCT USED FOR UNKNOWN INDICATION
     Dosage: (DF)
  12. B-12 VITAMIN [Concomitant]
  13. HYDROCHLOROTHIAZIDE. [Suspect]
     Active Substance: HYDROCHLOROTHIAZIDE
     Indication: PRODUCT USED FOR UNKNOWN INDICATION
     Dosage: (DF)
  14. LASIX [Suspect]
     Active Substance: FUROSEMIDE
     Indication: PRODUCT USED FOR UNKNOWN INDICATION
     Dosage: (DF)
  15. AMLODIPINE [Suspect]
     Active Substance: AMLODIPINE BESYLATE
     Indication: HYPERTENSION
     Dosage: (750 MG, FREQUENCY UNSPECIFIED)
  16. VITAMIN C [Concomitant]
     Active Substance: ASCORBIC ACID
  17. VITAMIN D [Concomitant]
     Active Substance: CHOLECALCIFEROL

REACTIONS (22)
  - Drug intolerance [None]
  - Haemoglobin decreased [None]
  - Fatigue [None]
  - Feeling abnormal [None]
  - Product quality issue [None]
  - Adrenal cyst [None]
  - Abdominal pain upper [None]
  - Drug ineffective [None]
  - Memory impairment [None]
  - Somnolence [None]
  - Malaise [None]
  - Macular degeneration [None]
  - Drug dispensing error [None]
  - Abasia [None]
  - Blood pressure increased [None]
  - Disorientation [None]
  - Hypertonic bladder [None]
  - Oedema peripheral [None]
  - Back pain [None]
  - Nausea [None]
  - Dizziness [None]
  - Incontinence [None]
